FAERS Safety Report 5605883-5 (Version None)
Quarter: 2008Q1

REPORT INFORMATION
  Report Type: 
  Country: None (occurrence: None)
  Receive Date: 20080125
  Receipt Date: 20080102
  Transmission Date: 20080703
  Serious: No
  Sender: FDA-Public Use
  Company Number: F9149BG-690

PATIENT
  Sex: Female

DRUGS (1)
  1. THERAGRAN  CASICUM OLEORESIN [Suspect]
     Indication: MYALGIA
     Dosage: 060
     Route: 061
     Dates: start: 20080101

REACTIONS (3)
  - BURNING SENSATION [None]
  - FEELING HOT [None]
  - IRRITABILITY [None]
